FAERS Safety Report 10547293 (Version 2)
Quarter: 2016Q4

REPORT INFORMATION
  Report Type: Report from Study
  Country: US (occurrence: US)
  Receive Date: 20141028
  Receipt Date: 20161005
  Transmission Date: 20170206
  Serious: Yes (Hospitalization, Other)
  Sender: FDA-Public Use
  Company Number: US-ROCHE-1478042

PATIENT
  Age: 61 Year
  Sex: Female
  Weight: 48.7 kg

DRUGS (4)
  1. BEVACIZUMAB [Suspect]
     Active Substance: BEVACIZUMAB
     Indication: OVARIAN EPITHELIAL CANCER
     Dosage: TOTAL DOSE ADMINISTERED THIS COURSE- 825 MG?LAST ADMINISTRATION DATE OF IND AGENT- 05/JAN/2014?CYCLE
     Route: 042
     Dates: start: 20130213, end: 20140501
  2. PACLITAXEL. [Suspect]
     Active Substance: PACLITAXEL
     Indication: OVARIAN EPITHELIAL CANCER
     Dosage: LAST ADMINISTRATION DATE OF IND AGENT- 20/JUN/2013,?CYCLE-1 AND CYCLE 2-6
     Route: 042
  3. CARBOPLATIN. [Suspect]
     Active Substance: CARBOPLATIN
     Indication: OVARIAN EPITHELIAL CANCER
     Dosage: LAST ADMINISTRATION DATE OF IND AGENT- 20/JUN/2013,?CYCLE-1 AND CYCLE 2-6
     Route: 042
  4. VELIPARIB [Suspect]
     Active Substance: VELIPARIB
     Indication: OVARIAN EPITHELIAL CANCER
     Dosage: LAST ADMINISTRATION DATE OF IND AGENT- 20/JUN/2013,?CYCLE-1 AND CYCLE 2-6
     Route: 048
     Dates: start: 20130213, end: 20140501

REACTIONS (9)
  - Cardiac failure [Recovered/Resolved]
  - Neutrophil count decreased [Unknown]
  - Left ventricular dysfunction [Recovered/Resolved]
  - Pulmonary oedema [Recovered/Resolved]
  - Hypoxia [Recovered/Resolved]
  - Troponin I increased [Unknown]
  - Embolism [Unknown]
  - Hypertension [Recovered/Resolved]
  - Hyponatraemia [Recovered/Resolved]

NARRATIVE: CASE EVENT DATE: 20140503
